FAERS Safety Report 12903534 (Version 4)
Quarter: 2017Q1

REPORT INFORMATION
  Report Type: Report from Study
  Country: US (occurrence: US)
  Receive Date: 20161102
  Receipt Date: 20170127
  Transmission Date: 20170428
  Serious: Yes (Hospitalization, Other)
  Sender: FDA-Public Use
  Company Number: US-GILEAD-2016-0241169

PATIENT
  Age: 51 Year
  Sex: Female

DRUGS (8)
  1. VELETRI [Suspect]
     Active Substance: EPOPROSTENOL
     Indication: PORTOPULMONARY HYPERTENSION
  2. COUMADIN [Concomitant]
     Active Substance: WARFARIN SODIUM
  3. SPIRONOLACTONE. [Concomitant]
     Active Substance: SPIRONOLACTONE
  4. ADCIRCA [Concomitant]
     Active Substance: TADALAFIL
  5. TORSEMIDE. [Concomitant]
     Active Substance: TORSEMIDE
  6. VELETRI [Suspect]
     Active Substance: EPOPROSTENOL
     Indication: PULMONARY ARTERIAL HYPERTENSION
     Dosage: 16.5 ^NG^/KG/MIN
     Route: 042
     Dates: start: 2011, end: 20161003
  7. AMBRISENTAN [Suspect]
     Active Substance: AMBRISENTAN
     Indication: PULMONARY ARTERIAL HYPERTENSION
     Dosage: 10 MG, QD
     Route: 048
     Dates: start: 201104
  8. AMBRISENTAN [Suspect]
     Active Substance: AMBRISENTAN
     Indication: PORTOPULMONARY HYPERTENSION

REACTIONS (7)
  - Hepatic cirrhosis [Not Recovered/Not Resolved]
  - Dyspnoea [Not Recovered/Not Resolved]
  - Fluid overload [Not Recovered/Not Resolved]
  - Cardiac failure high output [Not Recovered/Not Resolved]
  - Oedema [Not Recovered/Not Resolved]
  - Ascites [Not Recovered/Not Resolved]
  - Portopulmonary hypertension [Not Recovered/Not Resolved]
